FAERS Safety Report 18824837 (Version 2)
Quarter: 2021Q1

REPORT INFORMATION
  Report Type: Report from Study
  Country: BR (occurrence: BR)
  Receive Date: 20210202
  Receipt Date: 20210210
  Transmission Date: 20210419
  Serious: Yes (Hospitalization)
  Sender: FDA-Public Use
  Company Number: BR-ROCHE-2758639

PATIENT
  Age: 30 Year
  Sex: Female
  Weight: 104.3 kg

DRUGS (21)
  1. PREDNISONE. [Concomitant]
     Active Substance: PREDNISONE
     Indication: HISTIOCYTIC NECROTISING LYMPHADENITIS
     Route: 048
     Dates: start: 20210126, end: 20210126
  2. TRANEXAMIC ACID. [Concomitant]
     Active Substance: TRANEXAMIC ACID
     Indication: MENORRHAGIA
     Dates: start: 20210111
  3. MTIG 7192A [Suspect]
     Active Substance: TIRAGOLUMAB
     Indication: TRIPLE NEGATIVE BREAST CANCER
     Dosage: DATE OF MOST RECENT DOSE (420 MG) ADMINISTERED OF MTIG 7192A PRIOR TO AE/SAE ONSET: 14/JAN/2021
     Route: 042
     Dates: start: 20201216
  4. NAB?PACLITAXEL [Suspect]
     Active Substance: PACLITAXEL
     Indication: TRIPLE NEGATIVE BREAST CANCER
     Dosage: DOSE OF FIRST DRUG ADMINISTERED: 270 MG?DATE OF MOST RECENT DOSE (271 MG) OF NAB?PACLITAXEL ADMNINST
     Route: 042
     Dates: start: 20201216
  5. DIPYRONE [Concomitant]
     Active Substance: DIPYRONE
     Indication: HEADACHE
     Dates: start: 20201216, end: 20201216
  6. DIFENIDRAMINA [Concomitant]
     Active Substance: DIPHENHYDRAMINE
     Indication: INFUSION RELATED REACTION
     Dates: start: 20201230, end: 20201230
  7. SALINE [Concomitant]
     Active Substance: SODIUM CHLORIDE
     Indication: INFUSION RELATED REACTION
     Dates: start: 20201230, end: 20201230
  8. HYDROCORTISONE. [Concomitant]
     Active Substance: HYDROCORTISONE
     Indication: INFUSION RELATED REACTION
     Route: 042
     Dates: start: 20201230, end: 20201230
  9. PARACETAMOL [Concomitant]
     Active Substance: ACETAMINOPHEN
     Dates: start: 20210125, end: 20210125
  10. PREDNISONE. [Concomitant]
     Active Substance: PREDNISONE
     Route: 048
     Dates: start: 20210128, end: 20210201
  11. ATEZOLIZUMAB. [Suspect]
     Active Substance: ATEZOLIZUMAB
     Indication: TRIPLE NEGATIVE BREAST CANCER
     Dosage: DATE OF MOST RECENT DOSE (840 MG) ADMINISTERED OF ATEZOLIZUMAB PRIOR TO AE/SAE ONSET: 14/JAN/2021
     Route: 042
     Dates: start: 20201216
  12. PARACETAMOL [Concomitant]
     Active Substance: ACETAMINOPHEN
     Indication: PYREXIA
     Dates: start: 20210114, end: 20210114
  13. CIPROFLOXACIN. [Concomitant]
     Active Substance: CIPROFLOXACIN
     Dates: start: 20210126, end: 20210129
  14. CEFTRIAXONE. [Concomitant]
     Active Substance: CEFTRIAXONE
     Dates: start: 20210126, end: 20210126
  15. CELECOXIB. [Concomitant]
     Active Substance: CELECOXIB
     Indication: NECK PAIN
     Dates: start: 20210114, end: 20210119
  16. DIPYRONE [Concomitant]
     Active Substance: DIPYRONE
     Indication: PAIN
     Dates: start: 20201222, end: 20201223
  17. DIPYRONE [Concomitant]
     Active Substance: DIPYRONE
     Indication: NECK PAIN
     Dates: start: 20210114, end: 20210126
  18. MACROGOL [Concomitant]
     Active Substance: POLYETHYLENE GLYCOLS
     Indication: CONSTIPATION
     Dates: start: 20210102, end: 20210109
  19. AMOXICILLIN. [Concomitant]
     Active Substance: AMOXICILLIN
     Indication: TONSILLITIS
     Dates: start: 20201218
  20. MACROGOL [Concomitant]
     Active Substance: POLYETHYLENE GLYCOLS
     Dates: start: 20210102, end: 20210109
  21. BISACODYL. [Concomitant]
     Active Substance: BISACODYL
     Indication: CONSTIPATION
     Dates: start: 20210102, end: 20210109

REACTIONS (1)
  - Implant site dehiscence [Recovered/Resolved]

NARRATIVE: CASE EVENT DATE: 20210125
